FAERS Safety Report 17109922 (Version 2)
Quarter: 2022Q2

REPORT INFORMATION
  Report Type: Other
  Country: CZ (occurrence: CZ)
  Receive Date: 20191204
  Receipt Date: 20220524
  Transmission Date: 20220720
  Serious: Yes (Other)
  Sender: FDA-Public Use
  Company Number: CZ-002147023-NVSC2019CZ031717

PATIENT
  Age: 66 Year
  Sex: Female

DRUGS (8)
  1. CYCLOPHOSPHAMIDE [Suspect]
     Active Substance: CYCLOPHOSPHAMIDE
     Indication: Mantle cell lymphoma
     Dosage: 3 CYCLES OF R-CHOP
     Route: 065
     Dates: start: 201303, end: 201307
  2. CYTARABINE [Suspect]
     Active Substance: CYTARABINE
     Indication: Mantle cell lymphoma
     Dosage: 3 CYCLES OF R-ARA C
     Route: 065
  3. VINCRISTINE [Suspect]
     Active Substance: VINCRISTINE
     Indication: Mantle cell lymphoma
     Dosage: 3 CYCLES OF R-CHOP
     Route: 065
     Dates: start: 201303, end: 201307
  4. RITUXIMAB [Suspect]
     Active Substance: RITUXIMAB
     Indication: Mantle cell lymphoma
     Dosage: THREE CYCLES OF R CHOP ALTERNATING WITH THREE CYCLES OF R ARA C
     Route: 065
     Dates: start: 201303, end: 201307
  5. RITUXIMAB [Suspect]
     Active Substance: RITUXIMAB
     Indication: Mantle cell lymphoma recurrent
     Dosage: UNK(6 CYCLES)
     Route: 065
     Dates: start: 201608, end: 201701
  6. RITUXIMAB [Suspect]
     Active Substance: RITUXIMAB
     Route: 065
     Dates: start: 201310, end: 201508
  7. PREDNISOLONE [Suspect]
     Active Substance: PREDNISOLONE
     Indication: Mantle cell lymphoma
     Dosage: 3 CYCLES OF R-CHOP
     Route: 065
     Dates: start: 201303, end: 201307
  8. DOXORUBICIN [Suspect]
     Active Substance: DOXORUBICIN
     Indication: Mantle cell lymphoma
     Route: 065
     Dates: start: 201303, end: 201307

REACTIONS (1)
  - Mantle cell lymphoma recurrent [Recovering/Resolving]

NARRATIVE: CASE EVENT DATE: 20151101
